FAERS Safety Report 9053321 (Version 2)
Quarter: 2013Q1

REPORT INFORMATION
  Report Type: Spontaneous
  Country: US (occurrence: US)
  Receive Date: 20130207
  Receipt Date: 20130318
  Transmission Date: 20140127
  Serious: Yes (Other)
  Sender: FDA-Public Use
  Company Number: US-009507513-1302USA001875

PATIENT
  Age: 32 Year
  Sex: Male

DRUGS (1)
  1. ALENDRONATE SODIUM [Suspect]
     Indication: OSTEITIS DEFORMANS
     Dosage: 40 MG, QD
     Route: 048

REACTIONS (1)
  - Osteosarcoma [Unknown]
